FAERS Safety Report 5747172-4 (Version None)
Quarter: 2008Q2

REPORT INFORMATION
  Report Type: 
  Country: None (occurrence: None)
  Receive Date: 20080519
  Receipt Date: 20080502
  Transmission Date: 20081010
  Serious: Yes (Other)
  Sender: FDA-Public Use
  Company Number: 80845

PATIENT
  Age: 40 Year
  Sex: Female
  Weight: 63.5036 kg

DRUGS (1)
  1. CALCIUM ANTACID XS BERRY TABLETS/PERRIGO [Suspect]
     Indication: STOMACH DISCOMFORT
     Dosage: 2 TABLETS ONCE ORAL
     Route: 048
     Dates: start: 20080422, end: 20080422

REACTIONS (2)
  - ANAPHYLACTIC SHOCK [None]
  - OBSTRUCTIVE AIRWAYS DISORDER [None]
